FAERS Safety Report 23976222 (Version 2)
Quarter: 2024Q3

REPORT INFORMATION
  Report Type: Spontaneous
  Country: BR (occurrence: BR)
  Receive Date: 20240614
  Receipt Date: 20240930
  Transmission Date: 20241017
  Serious: Yes (Hospitalization, Other)
  Sender: SANDOZ
  Company Number: BR-002147023-NVSC2024BR064404

PATIENT
  Sex: Female

DRUGS (4)
  1. ANASTROZOLE [Suspect]
     Active Substance: ANASTROZOLE
     Indication: Product used for unknown indication
     Dosage: UNK
     Route: 065
  2. KISQALI [Suspect]
     Active Substance: RIBOCICLIB
     Dosage: 3 DF
     Route: 065
  3. KISQALI [Suspect]
     Active Substance: RIBOCICLIB
     Dosage: 2 DF, (2 TABLETS)
     Route: 065
     Dates: start: 20240606
  4. KISQALI [Suspect]
     Active Substance: RIBOCICLIB
     Indication: Product used for unknown indication
     Dosage: UNK, OTHER (2 TABLETS IN THE MORNING AND THEN, AFTER LUNCH, SHE TAKES 1 MORE)
     Route: 065

REACTIONS (12)
  - Upper limb fracture [Recovering/Resolving]
  - Scar [Recovering/Resolving]
  - Pain in extremity [Recovering/Resolving]
  - Diabetes mellitus [Unknown]
  - Memory impairment [Unknown]
  - Vision blurred [Unknown]
  - Hypertension [Unknown]
  - Abdominal pain upper [Unknown]
  - Head discomfort [Unknown]
  - Fatigue [Unknown]
  - Pulmonary pain [Unknown]
  - Inappropriate schedule of product administration [Unknown]
